FAERS Safety Report 5018950-4 (Version None)
Quarter: 2006Q2

REPORT INFORMATION
  Report Type: 
  Country: None (occurrence: None)
  Receive Date: 20060606
  Receipt Date: 20060206
  Transmission Date: 20061013
  Serious: Yes (Other)
  Sender: FDA-Public Use
  Company Number: 2006AC00343

PATIENT
  Age: 30 Year
  Sex: Female
  Weight: 88 kg

DRUGS (4)
  1. SELOZOK 100 [Suspect]
     Indication: MIGRAINE
     Dosage: HALF A TABLET EACH MORNING
     Route: 048
     Dates: end: 20060201
  2. RIBOFLAVINE 400 [Concomitant]
     Indication: MIGRAINE
     Route: 048
     Dates: start: 20060101
  3. MELIANE [Concomitant]
     Indication: CONTRACEPTION
     Route: 048
  4. ELTHYRONE [Concomitant]
     Indication: HYPOTHYROIDISM
     Dates: start: 19950101

REACTIONS (5)
  - AGGRESSION [None]
  - ANXIETY [None]
  - DEPRESSION [None]
  - DIARRHOEA [None]
  - NAUSEA [None]
